FAERS Safety Report 25266746 (Version 1)
Quarter: 2025Q2

REPORT INFORMATION
  Report Type: Spontaneous
  Country: US (occurrence: US)
  Receive Date: 20250505
  Receipt Date: 20250505
  Transmission Date: 20250717
  Serious: No
  Sender: NOVARTIS
  Company Number: US-002147023-NVSC2025US070670

PATIENT

DRUGS (1)
  1. KESIMPTA [Suspect]
     Active Substance: OFATUMUMAB
     Indication: Product used for unknown indication
     Route: 065

REACTIONS (23)
  - Headache [Unknown]
  - Fatigue [Unknown]
  - Anxiety [Recovered/Resolved with Sequelae]
  - Depression [Recovered/Resolved with Sequelae]
  - Pain [Unknown]
  - Pyrexia [Unknown]
  - COVID-19 [Unknown]
  - Alopecia [Unknown]
  - Disease progression [Unknown]
  - Illness [Unknown]
  - Panic attack [Unknown]
  - Obsessive-compulsive disorder [Unknown]
  - Infection [Unknown]
  - Nausea [Unknown]
  - Liver disorder [Unknown]
  - Disease recurrence [Unknown]
  - Paraesthesia [Unknown]
  - Weight decreased [Unknown]
  - Balance disorder [Unknown]
  - Hypoaesthesia [Unknown]
  - Cytokine test [Unknown]
  - Inflammation [Unknown]
  - Treatment failure [Unknown]
